FAERS Safety Report 13864324 (Version 1)
Quarter: 2017Q3

REPORT INFORMATION
  Report Type: Spontaneous
  Country: US (occurrence: None)
  Receive Date: 20170813
  Receipt Date: 20170813
  Transmission Date: 20171127
  Serious: No
  Sender: FDA-Public Use
  Company Number: None

PATIENT
  Age: 37 Year
  Sex: Male
  Weight: 77.11 kg

DRUGS (1)
  1. ADYNOVATE [Suspect]
     Active Substance: ANTIHEMOPHILIC FACTOR, HUMAN RECOMBINANT
     Indication: FACTOR VIII DEFICIENCY
     Dosage: 3200 UNITS/1600 UNITS TWICE WEEKLY AND PRN INTRAVENOUS
     Route: 042
     Dates: start: 20170629

REACTIONS (1)
  - Joint lock [None]

NARRATIVE: CASE EVENT DATE: 20170725
